FAERS Safety Report 7901367 (Version 3)
Quarter: 2013Q1

REPORT INFORMATION
  Report Type: Spontaneous
  Country: US (occurrence: US)
  Receive Date: 20110415
  Receipt Date: 20130319
  Transmission Date: 20140127
  Serious: Yes (Hospitalization, Other)
  Sender: FDA-Public Use
  Company Number: US-BAYER-2011-032400

PATIENT
  Age: 37 Year
  Sex: Female
  Weight: 108.84 kg

DRUGS (21)
  1. YASMIN [Suspect]
     Indication: CONTRACEPTION
     Dosage: UNK
     Route: 048
     Dates: start: 20030513, end: 2009
  2. YASMIN [Suspect]
     Indication: CONTRACEPTION
     Dosage: UNK
     Dates: start: 200406, end: 200508
  3. YASMIN [Suspect]
     Indication: CONTRACEPTION
     Dosage: UNK
     Dates: start: 200608, end: 200801
  4. SEROQUEL [Concomitant]
     Indication: PSYCHOTIC DISORDER
     Dosage: UNK
     Dates: start: 2002
  5. HERBAL PREPARATION [Concomitant]
     Dosage: UNK
     Dates: start: 20081231
  6. BETULA PENDULA [Concomitant]
     Dosage: UNK
     Dates: start: 20081231
  7. LARIXIN [Concomitant]
     Dosage: UNK
     Dates: start: 20090120
  8. NUTRITIONAL SUPPLEMENT [Concomitant]
     Dosage: UNK
     Dates: start: 20090120
  9. NUTRITIONAL SUPPLEMENT [Concomitant]
     Dosage: UNK
     Dates: start: 20090120
  10. PYRIDOXAL PHOSPHATE [Concomitant]
     Dosage: UNK
     Dates: start: 20090127
  11. OXYCONTIN [Concomitant]
  12. ENDOCET [Concomitant]
  13. HERBAL PREPARATION [Concomitant]
     Indication: DETOXIFICATION
     Dosage: 5 UNK, UNK
     Route: 048
     Dates: start: 20090120
  14. HERBAL PREPARATION [Concomitant]
     Indication: ASTHENIA
     Dosage: 3 CAPSULES A DAY
     Route: 048
     Dates: start: 20090203
  15. HERBAL PREPARATION [Concomitant]
     Indication: FATIGUE
  16. DIETARY SUPPLEMENT [Concomitant]
     Indication: STRESS
     Dosage: 1-3 CAPSULES A DAY
     Route: 048
     Dates: start: 20090203
  17. DIETARY SUPPLEMENT [Concomitant]
     Indication: FATIGUE
  18. DIETARY SUPPLEMENT [Concomitant]
     Indication: ADRENAL DISORDER
  19. MORPHINE [Concomitant]
     Dosage: UNK
  20. ISOCORT [Concomitant]
     Dosage: 4 TABS 2X DAY
     Dates: start: 20090102
  21. PERCOCET [Concomitant]
     Dosage: 7.5/325 MG 4-6 HOURS AS NECESSARY

REACTIONS (3)
  - Deep vein thrombosis [None]
  - Deep vein thrombosis [None]
  - Pain [None]
